FAERS Safety Report 9565794 (Version 2)
Quarter: 2013Q4

REPORT INFORMATION
  Report Type: Spontaneous
  Country: CN (occurrence: CN)
  Receive Date: 20130930
  Receipt Date: 20131022
  Transmission Date: 20140711
  Serious: Yes (Hospitalization)
  Sender: FDA-Public Use
  Company Number: CN-GLAXOSMITHKLINE-B0925773A

PATIENT
  Age: 59 Year
  Sex: Male

DRUGS (5)
  1. LAMIVUDINE-HBV [Suspect]
     Indication: CHRONIC HEPATITIS B
     Route: 065
     Dates: start: 20120227, end: 20120317
  2. ADEFOVIR DIPIVOXIL [Suspect]
     Indication: CHRONIC HEPATITIS B
     Route: 065
     Dates: start: 20120227, end: 20120317
  3. GLYCYRRHIZIN [Concomitant]
  4. GLUTATHIONE [Concomitant]
  5. AMILORIDE [Concomitant]
     Route: 048

REACTIONS (4)
  - Rash [Recovered/Resolved]
  - Rash maculo-papular [Unknown]
  - Pruritus [Unknown]
  - Drug hypersensitivity [Unknown]
